FAERS Safety Report 8234183-2 (Version None)
Quarter: 2012Q1

REPORT INFORMATION
  Report Type: 
  Country: None (occurrence: None)
  Receive Date: 20120326
  Receipt Date: 20120315
  Transmission Date: 20120608
  Serious: Yes (Other)
  Sender: FDA-Public Use
  Company Number: US-BRISTOL-MYERS SQUIBB COMPANY-16456709

PATIENT
  Age: 66 Year
  Sex: Female

DRUGS (2)
  1. ORENCIA [Suspect]
     Indication: RHEUMATOID ARTHRITIS
     Dosage: LAST INF: 7MAR12.
     Route: 042
     Dates: start: 20111116
  2. PREDNISONE TAB [Concomitant]

REACTIONS (2)
  - PAIN [None]
  - ARTHROPATHY [None]
